FAERS Safety Report 9774398 (Version 1)
Quarter: 2013Q4

REPORT INFORMATION
  Report Type: Other
  Country: GB (occurrence: GB)
  Receive Date: 20131220
  Receipt Date: 20131220
  Transmission Date: 20140711
  Serious: Yes (Disabling)
  Sender: FDA-Public Use
  Company Number: GB-TARO PHARMACEUTICALS U.S.A., INC-2013SUN05252

PATIENT
  Age: 75 Year
  Sex: Male
  Weight: 109.3 kg

DRUGS (6)
  1. WARFARIN [Suspect]
     Indication: PRODUCT USED FOR UNKNOWN INDICATION
     Dosage: UNK
     Route: 065
     Dates: start: 20131113
  2. ASPIRIN [Concomitant]
     Dosage: UNK
     Dates: start: 20130905
  3. CLOPIDOGREL [Concomitant]
     Dosage: UNK
     Dates: start: 20131129
  4. LISINOPRIL [Concomitant]
     Dosage: UNK
     Dates: start: 20130912
  5. NEDOCROMIL SODIUM [Concomitant]
     Dosage: UNK
     Dates: start: 20131115
  6. VERAPAMIL HYDROCHLORIDE [Concomitant]
     Dosage: UNK
     Dates: start: 20131113

REACTIONS (2)
  - Dermatitis exfoliative [Unknown]
  - Exfoliative rash [Recovering/Resolving]
